FAERS Safety Report 4849583-8 (Version None)
Quarter: 2005Q4

REPORT INFORMATION
  Report Type: 
  Country: None (occurrence: None)
  Receive Date: 20051207
  Receipt Date: 20050901
  Transmission Date: 20060501
  Serious: Yes (Hospitalization, Other)
  Sender: FDA-Public Use
  Company Number: 2004118199

PATIENT
  Age: 54 Year
  Sex: Female
  Weight: 51 kg

DRUGS (10)
  1. EPIRUBICIN HCL [Suspect]
     Indication: BREAST CANCER
     Dosage: SEE IMAGE
     Route: 042
     Dates: start: 20041014, end: 20041124
  2. EPIRUBICIN HCL [Suspect]
     Indication: BREAST CANCER
     Dosage: SEE IMAGE
     Route: 042
     Dates: start: 20041207, end: 20041214
  3. CYCLOPHOSPHAMIDE [Suspect]
     Indication: BREAST CANCER
     Dosage: 894 MG (894 MG,CYCLIC),INTRAVENOUS
     Route: 042
     Dates: start: 20041014, end: 20041124
  4. DECADRON [Concomitant]
  5. KYTRIL [Concomitant]
  6. LAFUTIDINE (LAFUTIDINE) [Concomitant]
  7. LORAZEPAM [Concomitant]
  8. NOVAMIN (PROCHLORPERAZINE) [Concomitant]
  9. MAGNESIUM OXIDE (MAGNESIUM OXIDE) [Concomitant]
  10. PURSENNID (SENNA LEAF) [Concomitant]

REACTIONS (3)
  - BLOOD BETA-D-GLUCAN INCREASED [None]
  - INFECTION [None]
  - INTERSTITIAL LUNG DISEASE [None]
